FAERS Safety Report 15602300 (Version 1)
Quarter: 2018Q4

REPORT INFORMATION
  Report Type: Spontaneous
  Country: US (occurrence: US)
  Receive Date: 20181106
  Receipt Date: 20181106
  Transmission Date: 20190205
  Serious: Yes (Hospitalization)
  Sender: FDA-Public Use
  Company Number: None

PATIENT
  Age: 66 Year
  Sex: Female

DRUGS (11)
  1. ALLOPURINOL. [Concomitant]
     Active Substance: ALLOPURINOL
  2. CAPECITABINE. [Suspect]
     Active Substance: CAPECITABINE
     Indication: BREAST CANCER
     Dosage: 1500 MG BID 1-14 7 OFF; BY MOUTH?
     Route: 048
     Dates: start: 20180927, end: 201811
  3. CAPECITABINE. [Suspect]
     Active Substance: CAPECITABINE
  4. SIMVASTATIN. [Concomitant]
     Active Substance: SIMVASTATIN
  5. SYNTHROID [Concomitant]
     Active Substance: LEVOTHYROXINE SODIUM
  6. ENALAPRIL [Concomitant]
     Active Substance: ENALAPRIL
  7. FASLODEX [Concomitant]
     Active Substance: FULVESTRANT
  8. WARFARIN [Concomitant]
     Active Substance: WARFARIN
  9. XGEVA [Concomitant]
     Active Substance: DENOSUMAB
  10. FUROSEMIDE. [Concomitant]
     Active Substance: FUROSEMIDE
  11. CARVEDILOL. [Concomitant]
     Active Substance: CARVEDILOL

REACTIONS (1)
  - Diarrhoea [None]

NARRATIVE: CASE EVENT DATE: 20181026
